FAERS Safety Report 7543299-5 (Version None)
Quarter: 2011Q2

REPORT INFORMATION
  Report Type: 
  Country: None (occurrence: None)
  Receive Date: 20110524
  Receipt Date: 20110222
  Transmission Date: 20111010
  Serious: No
  Sender: FDA-Public Use
  Company Number: 024007

PATIENT
  Sex: Female
  Weight: 69.3 kg

DRUGS (14)
  1. CIMZIA [Suspect]
     Indication: CROHN'S DISEASE
     Dosage: 400 MG 1X/2 WEEKS, INDUCTION DOSE SUBCUTANEOUS
     Route: 058
     Dates: start: 20101216, end: 20110113
  2. PENTASA [Concomitant]
  3. ENTOCORT EC [Concomitant]
  4. CLARITIN [Concomitant]
  5. BLACK COHOSH [Concomitant]
  6. SILYBUM MARIANUM [Concomitant]
  7. METOPROLOL TARTRATE [Concomitant]
  8. FOLIC ACID [Concomitant]
  9. MULTI-VITAMIN [Concomitant]
  10. NEXIUM [Concomitant]
  11. POTASSIUM [Concomitant]
  12. IMODIUM [Concomitant]
  13. ASPIRIN [Concomitant]
  14. VITAMIN B-12 [Concomitant]

REACTIONS (6)
  - DIARRHOEA [None]
  - INJECTION SITE DISCOLOURATION [None]
  - VISION BLURRED [None]
  - FAECES DISCOLOURED [None]
  - BOWEL MOVEMENT IRREGULARITY [None]
  - EYE DISORDER [None]
